FAERS Safety Report 26147194 (Version 3)
Quarter: 2025Q4

REPORT INFORMATION
  Report Type: Spontaneous
  Country: US (occurrence: US)
  Receive Date: 20251211
  Receipt Date: 20251222
  Transmission Date: 20260117
  Serious: No
  Sender: ABBVIE
  Company Number: US-ABBVIE-6581525

PATIENT
  Age: 74 Year
  Sex: Female
  Weight: 56.245 kg

DRUGS (4)
  1. ARMOUR THYROID [Suspect]
     Active Substance: THYROID, PORCINE
     Indication: Hypothyroidism
     Dosage: FORM STRENGTH: 120 MILLIGRAM?START DATE TEXT: 20-25 YEARS AGO
     Route: 048
     Dates: start: 2000
  2. ARMOUR THYROID [Suspect]
     Active Substance: THYROID, PORCINE
     Indication: Hypothyroidism
     Route: 048
  3. NATURE-THROID [Suspect]
     Active Substance: THYROID, PORCINE
     Indication: Blood cholesterol
     Dosage: FORM STRENGTH: 120 MILLIGRAM
     Route: 048
  4. ZETIA [Concomitant]
     Active Substance: EZETIMIBE
     Indication: Blood cholesterol

REACTIONS (7)
  - Product prescribing error [Unknown]
  - Product quality issue [Not Recovered/Not Resolved]
  - Palpitations [Not Recovered/Not Resolved]
  - Incorrect dose administered [Not Recovered/Not Resolved]
  - Visual impairment [Not Recovered/Not Resolved]
  - Cardiac flutter [Not Recovered/Not Resolved]
  - Dyspnoea [Not Recovered/Not Resolved]

NARRATIVE: CASE EVENT DATE: 20251201
